FAERS Safety Report 12096570 (Version 1)
Quarter: 2016Q1

REPORT INFORMATION
  Report Type: Other
  Country: US (occurrence: US)
  Receive Date: 20160220
  Receipt Date: 20160220
  Transmission Date: 20160526
  Serious: No
  Sender: FDA-Public Use
  Company Number: US-ACORDA-ACO_108926_2015

PATIENT
  Sex: Female

DRUGS (1)
  1. AMPYRA [Suspect]
     Active Substance: DALFAMPRIDINE
     Indication: MULTIPLE SCLEROSIS
     Dosage: 10 MG, BID
     Route: 048
     Dates: start: 2010, end: 20150201

REACTIONS (7)
  - Dry mouth [Not Recovered/Not Resolved]
  - Therapy cessation [Unknown]
  - Hypoaesthesia [Recovering/Resolving]
  - Gait disturbance [Not Recovered/Not Resolved]
  - Neuropathy peripheral [Not Recovered/Not Resolved]
  - Burning sensation [Recovering/Resolving]
  - Oral herpes [Recovered/Resolved]

NARRATIVE: CASE EVENT DATE: 2011
